FAERS Safety Report 7250826-4 (Version None)
Quarter: 2011Q1

REPORT INFORMATION
  Report Type: 
  Country: None (occurrence: None)
  Receive Date: 20110128
  Receipt Date: 20110121
  Transmission Date: 20110831
  Serious: Yes (Other)
  Sender: FDA-Public Use
  Company Number: AU-AMGEN-AUSSP2010007692

PATIENT
  Sex: Male

DRUGS (8)
  1. CYCLOPHOSPHAMIDE [Suspect]
     Dosage: UNK UNK, Q2WK
     Dates: start: 20101014
  2. NEULASTA [Suspect]
     Dosage: 6 MG, UNK
     Route: 058
     Dates: start: 20101015
  3. DOXORUBICIN [Suspect]
     Dosage: 95 MG, Q2WK
     Dates: start: 20101014
  4. KYTRIL [Concomitant]
     Dosage: UNK
     Dates: start: 20101014
  5. RITUXIMAB [Concomitant]
     Dosage: 700 MG, Q2WK
     Dates: start: 20101014
  6. DEXAMETHASONE [Concomitant]
     Dosage: UNK
     Dates: start: 20101014
  7. VINCRISTINE [Suspect]
     Dosage: 2 MG, UNK
     Dates: start: 20101014
  8. PREDNISOLONE [Concomitant]

REACTIONS (2)
  - NEUTROPENIA [None]
  - DRUG INEFFECTIVE [None]
